FAERS Safety Report 8648723 (Version 3)
Quarter: 2012Q4

REPORT INFORMATION
  Report Type: 
  Country: DE (occurrence: DE)
  Receive Date: 20120703
  Receipt Date: 20120907
  Transmission Date: 20130627
  Serious: Yes (Hospitalization, Other)
  Sender: FDA-Public Use
  Company Number: DE-ELI_LILLY_AND_COMPANY-DE201206007623

PATIENT
  Sex: Male

DRUGS (15)
  1. BYETTA [Suspect]
     Indication: TYPE 2 DIABETES MELLITUS
     Dosage: 5 ug, unknown
     Route: 058
     Dates: start: 200908, end: 200912
  2. BYETTA [Suspect]
     Dosage: 10 ug, unknown
     Route: 058
     Dates: start: 200912, end: 201205
  3. BYDUREON [Suspect]
     Indication: TYPE 2 DIABETES MELLITUS
     Dosage: 2 mg, weekly (1/W)
     Route: 058
     Dates: start: 201205
  4. METFORMIN [Concomitant]
     Dosage: 850 mg, bid
  5. FUROSEMID-RATIOPHARM               /00032601/ [Concomitant]
  6. PRAVASTATIN [Concomitant]
  7. ALLOPURINOL [Concomitant]
  8. TAMSULOSIN [Concomitant]
     Dosage: 0.4 mg, qd
  9. NOVAMINOSULFON [Concomitant]
     Dosage: 500 mg, bid
  10. DUOPLAVIN [Concomitant]
     Dosage: 2 DF, qd
  11. NEURO-LICHTENSTEIN [Concomitant]
  12. NEBIVOLOL [Concomitant]
     Dosage: 5 mg, qd
  13. CANDESARTAN [Concomitant]
     Dosage: 8 mg, qd
  14. EPROSARTAN [Concomitant]
  15. MAGNESIUM VERLA                    /00648601/ [Concomitant]

REACTIONS (3)
  - Carotid artery stenosis [Recovered/Resolved]
  - Cholelithiasis [Recovered/Resolved]
  - Coronary angioplasty [Unknown]
